FAERS Safety Report 11253330 (Version 1)
Quarter: 2015Q3

REPORT INFORMATION
  Report Type: Spontaneous
  Country: US (occurrence: US)
  Receive Date: 20150709
  Receipt Date: 20150709
  Transmission Date: 20151125
  Serious: Yes (Hospitalization)
  Sender: FDA-Public Use
  Company Number: US-TEVA-557673USA

PATIENT
  Age: 78 Year
  Sex: Female

DRUGS (17)
  1. LEVOFLOXACIN. [Suspect]
     Active Substance: LEVOFLOXACIN
     Indication: BRONCHITIS
     Route: 065
     Dates: start: 201311
  2. INOSITOL [Concomitant]
     Active Substance: INOSITOL
     Dosage: 500 MILLIGRAM DAILY;
  3. LEVOFLOXACIN. [Suspect]
     Active Substance: LEVOFLOXACIN
     Indication: PULMONARY CONGESTION
  4. OMEGA-EFA [Concomitant]
     Dosage: TWICE DAILY
  5. PREDNISONE. [Concomitant]
     Active Substance: PREDNISONE
     Dosage: TAPER
     Dates: start: 20141031, end: 20150223
  6. VITAMIN C [Concomitant]
     Active Substance: ASCORBIC ACID
     Dosage: 500 MILLIGRAM DAILY;
  7. GARLIC. [Concomitant]
     Active Substance: GARLIC
     Dosage: DAILY
  8. VITAMIN B COMPLEX [Concomitant]
     Active Substance: CYANOCOBALAMIN\DEXPANTHENOL\NIACINAMIDE\PYRIDOXINE HYDROCHLORIDE\RIBOFLAVIN 5^-PHOSPHATE SODIUM\THIAMINE HYDROCHLORIDE\VITAMIN B COMPLEX
     Dosage: DAILY
  9. MSM [Concomitant]
     Active Substance: DIMETHYL SULFONE
     Dosage: 300 MILLIGRAM DAILY;
  10. SELENIUM [Concomitant]
     Active Substance: SELENIUM
     Dosage: 100 MICROGRAM DAILY;
  11. LUTEIN [Concomitant]
     Active Substance: LUTEIN
     Dosage: 10 MILLIGRAM DAILY;
  12. BIOTIN [Concomitant]
     Active Substance: BIOTIN
     Dosage: 1000 MILLIGRAM DAILY;
  13. ASPIRIN. [Concomitant]
     Active Substance: ASPIRIN
     Indication: PAIN
     Dosage: 325 MILLIGRAM DAILY;
  14. LEVOFLOXACIN. [Suspect]
     Active Substance: LEVOFLOXACIN
     Indication: BRONCHITIS
     Dosage: 500 MILLIGRAM DAILY;
     Route: 048
     Dates: start: 20141010
  15. GLUCOSAMINE SULFATE W/CHONDROITIN [Concomitant]
     Dosage: 1000MG/1.2 G DAILY
  16. BONE STRENGTH COMPLEX [Concomitant]
     Dosage: TWICE DAILY
  17. BENADRYL [Concomitant]
     Active Substance: DIPHENHYDRAMINE HYDROCHLORIDE
     Indication: SLEEP DISORDER
     Dosage: 25 MILLIGRAM DAILY;

REACTIONS (5)
  - Tendon pain [Not Recovered/Not Resolved]
  - Joint swelling [Not Recovered/Not Resolved]
  - Arthralgia [Not Recovered/Not Resolved]
  - Myalgia [Not Recovered/Not Resolved]
  - Tendon pain [Unknown]

NARRATIVE: CASE EVENT DATE: 201311
